FAERS Safety Report 5690950-0 (Version None)
Quarter: 2008Q2

REPORT INFORMATION
  Report Type: 
  Country: None (occurrence: None)
  Receive Date: 20080401
  Receipt Date: 20080321
  Transmission Date: 20081010
  Serious: Yes (Hospitalization, Other)
  Sender: FDA-Public Use
  Company Number: US-WYE-H03235908

PATIENT
  Age: 41 Year
  Sex: Male

DRUGS (2)
  1. PREPARATION H [Suspect]
     Indication: ANORECTAL DISCOMFORT
     Dosage: UNKNOWN TWO TO THREE TIMES PER DAY
     Route: 065
  2. PREPARATION H [Suspect]
     Dosage: UNKNOWN TEN TO SIXTEEN TIMES A DAY FOR THE PAST YEAR
     Route: 054

REACTIONS (11)
  - ANXIETY [None]
  - ASTHENIA [None]
  - CONDITION AGGRAVATED [None]
  - DRUG ABUSE [None]
  - DRUG DEPENDENCE [None]
  - DRUG WITHDRAWAL SYNDROME [None]
  - ENERGY INCREASED [None]
  - HYPERTENSION [None]
  - INTENTIONAL OVERDOSE [None]
  - MYOCARDIAL INFARCTION [None]
  - THERAPEUTIC RESPONSE UNEXPECTED [None]
